FAERS Safety Report 8811164 (Version 1)
Quarter: 2012Q4

REPORT INFORMATION
  Report Type: 
  Country: JP (occurrence: JP)
  Receive Date: 20120927
  Receipt Date: 20120927
  Transmission Date: 20130627
  Serious: Yes (Other)
  Sender: FDA-Public Use
  Company Number: JP-BAYER-2012-098614

PATIENT
  Age: 54 Year
  Sex: Female

DRUGS (1)
  1. NIFEDIPINE [Suspect]
     Dosage: Daily dose 1000 mg
     Route: 048

REACTIONS (3)
  - Blood pressure decreased [Recovering/Resolving]
  - Renal failure acute [Recovering/Resolving]
  - Intentional overdose [Recovering/Resolving]
